FAERS Safety Report 22180184 (Version 1)
Quarter: 2023Q2

REPORT INFORMATION
  Report Type: Spontaneous
  Country: US (occurrence: US)
  Receive Date: 20230406
  Receipt Date: 20230406
  Transmission Date: 20230721
  Serious: Yes (Other)
  Sender: FDA-Public Use
  Company Number: US-SUN PHARMACEUTICAL INDUSTRIES LTD-2023R1-384049

PATIENT
  Age: 42 Year
  Sex: Male

DRUGS (5)
  1. PREDNISONE [Suspect]
     Active Substance: PREDNISONE
     Indication: Immune thrombocytopenia
     Dosage: 30 MILLIGRAM, DAILY
     Route: 065
     Dates: start: 20200212, end: 20200325
  2. ROMIPLOSTIM [Suspect]
     Active Substance: ROMIPLOSTIM
     Dosage: 2-3 MCG/KG, WEEKLY
     Route: 065
     Dates: start: 20200312, end: 20200425
  3. ROMIPLOSTIM [Suspect]
     Active Substance: ROMIPLOSTIM
     Indication: Immune thrombocytopenia
  4. ROMIPLOSTIM [Suspect]
     Active Substance: ROMIPLOSTIM
  5. RITUXIMAB [Suspect]
     Active Substance: RITUXIMAB
     Indication: Immune thrombocytopenia
     Dosage: 800 MILLIGRAM, WEEKLY/4 DOSES
     Route: 065
     Dates: start: 20200312, end: 20200425

REACTIONS (1)
  - Drug ineffective [Unknown]
